FAERS Safety Report 16034702 (Version 1)
Quarter: 2019Q1

REPORT INFORMATION
  Report Type: Spontaneous
  Country: US (occurrence: US)
  Receive Date: 20190205
  Receipt Date: 20190205
  Transmission Date: 20190418
  Serious: No
  Sender: FDA-Public Use
  Company Number: None

PATIENT
  Age: 55 Year
  Sex: Male

DRUGS (1)
  1. COPAXONE [Suspect]
     Active Substance: GLATIRAMER ACETATE
     Dosage: ?          OTHER
     Route: 058
     Dates: start: 2017

REACTIONS (3)
  - Injection related reaction [None]
  - Dyspnoea [None]
  - Chest pain [None]

NARRATIVE: CASE EVENT DATE: 20190205
